FAERS Safety Report 8319619-0 (Version None)
Quarter: 2012Q2

REPORT INFORMATION
  Report Type: 
  Country: None (occurrence: None)
  Receive Date: 20120427
  Receipt Date: 20120419
  Transmission Date: 20120825
  Serious: Yes (Hospitalization)
  Sender: FDA-Public Use
  Company Number: PHHY2012IT033138

PATIENT
  Sex: Female

DRUGS (8)
  1. OXCARBAZEPINE [Suspect]
     Indication: EPILEPSY
     Dosage: 300 MG, BID
     Route: 048
     Dates: start: 20101007, end: 20120227
  2. OXCARBAZEPINE [Suspect]
     Dosage: 300 MG, BID
     Route: 048
     Dates: start: 20120313
  3. LAMICTAL [Suspect]
     Indication: EPILEPSY
     Dosage: 1 DF, QD
     Route: 048
     Dates: start: 20100101
  4. ZYPREXA [Concomitant]
     Indication: MANIA
     Dosage: 1 DF
     Route: 048
  5. FLURAZEPAM HYDROCHLORIDE [Concomitant]
     Indication: INSOMNIA
     Dosage: 1 DF
     Route: 048
  6. CLONAZEPAM [Suspect]
     Indication: EPILEPSY
     Dosage: 2 DF, QD
     Route: 048
     Dates: start: 20100101
  7. OXCARBAZEPINE [Suspect]
     Dosage: 600 MG, BID
     Route: 048
     Dates: start: 20120227, end: 20120312
  8. FRISIUM [Concomitant]
     Indication: ANXIETY
     Dosage: 5 MG
     Route: 048

REACTIONS (1)
  - DIPLOPIA [None]
